FAERS Safety Report 4610945-5 (Version None)
Quarter: 2005Q1

REPORT INFORMATION
  Report Type: 
  Country: None (occurrence: None)
  Receive Date: 20050315
  Receipt Date: 20050315
  Transmission Date: 20050727
  Serious: Yes (Life-Threatening, Hospitalization)
  Sender: FDA-Public Use
  Company Number: None

PATIENT
  Age: 60 Year
  Sex: Female

DRUGS (1)
  1. ADVIL [Suspect]
     Indication: PAIN
     Dosage: 200MG ONCE ORAL
     Route: 048
     Dates: start: 20050227, end: 20050227

REACTIONS (2)
  - CHEST DISCOMFORT [None]
  - DYSPNOEA [None]
